FAERS Safety Report 6330335-7 (Version None)
Quarter: 2009Q3

REPORT INFORMATION
  Report Type: 
  Country: None (occurrence: None)
  Receive Date: 20090826
  Receipt Date: 20090826
  Transmission Date: 20100115
  Serious: Yes (Hospitalization)
  Sender: FDA-Public Use
  Company Number: None

PATIENT
  Sex: Male
  Weight: 198.6 kg

DRUGS (1)
  1. NAPROXEN [Suspect]
     Indication: BACK PAIN
     Dosage: 500MG TWICE DAILY PO
     Route: 048
     Dates: start: 20090715, end: 20090803

REACTIONS (3)
  - GASTRIC BYPASS [None]
  - HAEMATEMESIS [None]
  - PEPTIC ULCER [None]
